FAERS Safety Report 9402832 (Version 1)
Quarter: 2013Q3

REPORT INFORMATION
  Report Type: Spontaneous
  Country: US (occurrence: None)
  Receive Date: 20130715
  Receipt Date: 20130715
  Transmission Date: 20140515
  Serious: Yes (Hospitalization, Disabling)
  Sender: FDA-Public Use
  Company Number: None

PATIENT
  Age: 82 Year
  Sex: Female
  Weight: 49.9 kg

DRUGS (1)
  1. XELODA 500 MG [Suspect]
     Dosage: 3 TABLETS TWICE A DAY

REACTIONS (4)
  - Diarrhoea [None]
  - Weight decreased [None]
  - Incorrect dose administered [None]
  - Toxicity to various agents [None]
